FAERS Safety Report 11907010 (Version 1)
Quarter: 2016Q1

REPORT INFORMATION
  Report Type: Spontaneous
  Country: CA (occurrence: CA)
  Receive Date: 20160111
  Receipt Date: 20160111
  Transmission Date: 20160526
  Serious: Yes (Other)
  Sender: FDA-Public Use
  Company Number: CA-TEVA-548195ACC

PATIENT
  Age: 27 Year
  Sex: Male
  Weight: 81.72 kg

DRUGS (3)
  1. PERPHENAZINE. [Concomitant]
     Active Substance: PERPHENAZINE
     Dosage: UNKNOWN FORM STRENGTH
     Route: 065
  2. ABILIFY [Concomitant]
     Active Substance: ARIPIPRAZOLE
     Dosage: UNKNOWN FORM STRENGTH
     Route: 065
  3. MIRTAZAPINE. [Suspect]
     Active Substance: MIRTAZAPINE
     Indication: AUTISM SPECTRUM DISORDER
     Dosage: 45 MILLIGRAM DAILY;
     Route: 065

REACTIONS (3)
  - Depression [Recovered/Resolved]
  - Product substitution issue [Recovered/Resolved]
  - Psychotic disorder [Recovered/Resolved]
